FAERS Safety Report 7351831-X (Version None)
Quarter: 2011Q1

REPORT INFORMATION
  Report Type: 
  Country: None (occurrence: None)
  Receive Date: 20110315
  Receipt Date: 20110224
  Transmission Date: 20110831
  Serious: Yes (Other)
  Sender: FDA-Public Use
  Company Number: US-BAYER-201036546NA

PATIENT
  Sex: Female
  Weight: 95 kg

DRUGS (15)
  1. YAZ [Suspect]
     Indication: POLYCYSTIC OVARIES
  2. YASMIN [Suspect]
     Indication: ACNE
     Dosage: UNK
     Dates: start: 20050401, end: 20060101
  3. PROTONIX [Concomitant]
  4. ERYTHROMYCIN [Concomitant]
  5. YASMIN [Suspect]
     Indication: CONTRACEPTION
     Dosage: UNK
     Route: 048
     Dates: start: 20050401, end: 20090301
  6. ZOLOFT [Concomitant]
     Dosage: 100 MG, UNK
  7. YAZ [Suspect]
     Indication: ACNE
     Dosage: UNK
     Dates: start: 20080701, end: 20090801
  8. ALLEGRA-D 12 HOUR [Concomitant]
     Route: 045
  9. YAZ [Suspect]
     Indication: PREMENSTRUAL SYNDROME
  10. YAZ [Suspect]
     Indication: CONTRACEPTION
     Dosage: UNK
     Route: 048
     Dates: start: 20090401, end: 20090601
  11. YASMIN [Suspect]
     Indication: PREMENSTRUAL SYNDROME
  12. VIGAMOX [Concomitant]
     Route: 047
  13. YASMIN [Suspect]
     Indication: POLYCYSTIC OVARIES
  14. NSAID'S [Concomitant]
     Dosage: UNK UNK, PRN
  15. FLONASE [Concomitant]
     Dosage: UNK
     Route: 045

REACTIONS (8)
  - CHOLECYSTITIS ACUTE [None]
  - ABDOMINAL PAIN [None]
  - CHOLECYSTITIS CHRONIC [None]
  - CHOLELITHIASIS [None]
  - BARRETT'S OESOPHAGUS [None]
  - GASTRITIS [None]
  - GALLBLADDER INJURY [None]
  - REFLUX OESOPHAGITIS [None]
